FAERS Safety Report 5109893-6 (Version None)
Quarter: 2006Q3

REPORT INFORMATION
  Report Type: 
  Country: None (occurrence: None)
  Receive Date: 20060921
  Receipt Date: 20060919
  Transmission Date: 20061208
  Serious: Yes (Hospitalization, Other)
  Sender: FDA-Public Use
  Company Number: BE-RB-4079-2006

PATIENT
  Age: 24 Year
  Sex: Male

DRUGS (2)
  1. BUPRENORPHINE HCL [Suspect]
     Indication: DRUG DEPENDENCE
     Dosage: FOR APPROXIMATELY 5 MONTHS
     Route: 065
     Dates: start: 20050915
  2. BUPRENORPHINE HCL [Suspect]
     Dosage: FOR APPROXIMATELY 4 MONTHS
     Route: 065

REACTIONS (1)
  - PNEUMONITIS [None]
